FAERS Safety Report 8441133-2 (Version None)
Quarter: 2012Q2

REPORT INFORMATION
  Report Type: 
  Country: None (occurrence: None)
  Receive Date: 20120615
  Receipt Date: 20120612
  Transmission Date: 20120825
  Serious: Yes (Hospitalization)
  Sender: FDA-Public Use
  Company Number: US-ELI_LILLY_AND_COMPANY-US201205006098

PATIENT
  Sex: Male

DRUGS (6)
  1. ASPIRIN [Concomitant]
     Dosage: 81 MG, QD
  2. ATORVASTATIN CALCIUM [Concomitant]
  3. VICOPROFEN [Concomitant]
  4. EFFIENT [Suspect]
     Dosage: UNK
     Dates: start: 20120313
  5. METOPROLOL SUCCINATE [Concomitant]
  6. ASPIRIN [Concomitant]
     Dosage: 325 MG, QD

REACTIONS (2)
  - GASTRIC ULCER [None]
  - EPISTAXIS [None]
